FAERS Safety Report 4534545-0 (Version None)
Quarter: 2004Q4

REPORT INFORMATION
  Report Type: 
  Country: None (occurrence: None)
  Receive Date: 20041214
  Receipt Date: 20041019
  Transmission Date: 20050328
  Serious: No
  Sender: FDA-Public Use
  Company Number: 2004240512US

PATIENT
  Age: 73 Year
  Sex: Female
  Weight: 76.2 kg

DRUGS (1)
  1. BEXTRA [Suspect]
     Indication: JOINT SPRAIN
     Dosage: 10 MG, QD, ORAL
     Route: 048
     Dates: start: 20040901

REACTIONS (2)
  - DIFFICULTY IN WALKING [None]
  - UNEVALUABLE EVENT [None]
